FAERS Safety Report 12491888 (Version 1)
Quarter: 2016Q2

REPORT INFORMATION
  Report Type: Report from Study
  Country: US (occurrence: US)
  Receive Date: 20160623
  Receipt Date: 20160623
  Transmission Date: 20160815
  Serious: Yes (Hospitalization)
  Sender: FDA-Public Use
  Company Number: US-JNJFOC-20160426738

PATIENT
  Age: 67 Year
  Sex: Male

DRUGS (2)
  1. IMBRUVICA [Suspect]
     Active Substance: IBRUTINIB
     Indication: CHRONIC LYMPHOCYTIC LEUKAEMIA
     Route: 048
     Dates: start: 2016
  2. IMBRUVICA [Suspect]
     Active Substance: IBRUTINIB
     Indication: CHRONIC LYMPHOCYTIC LEUKAEMIA
     Route: 048
     Dates: start: 20151124, end: 2016

REACTIONS (5)
  - Exercise lack of [Not Recovered/Not Resolved]
  - Asthenia [Not Recovered/Not Resolved]
  - Productive cough [Not Recovered/Not Resolved]
  - Hospitalisation [Unknown]
  - Pneumonia [Unknown]

NARRATIVE: CASE EVENT DATE: 201603
